FAERS Safety Report 16009358 (Version 2)
Quarter: 2019Q1

REPORT INFORMATION
  Report Type: Report from Study
  Country: US (occurrence: US)
  Receive Date: 20190225
  Receipt Date: 20190320
  Transmission Date: 20190418
  Serious: Yes (Life-Threatening, Hospitalization)
  Sender: FDA-Public Use
  Company Number: PHEH2019US007945

PATIENT
  Sex: Male

DRUGS (1)
  1. ENTRESTO [Suspect]
     Active Substance: SACUBITRIL\VALSARTAN
     Indication: PRODUCT USED FOR UNKNOWN INDICATION
     Dosage: UNK UNK, BID
     Route: 048

REACTIONS (12)
  - Gait disturbance [Unknown]
  - Eating disorder [Unknown]
  - Insomnia [Unknown]
  - Limb discomfort [Unknown]
  - Pain [Unknown]
  - Feeling abnormal [Unknown]
  - Depressed mood [Unknown]
  - Pulmonary oedema [Unknown]
  - Suicidal ideation [Unknown]
  - Atrial fibrillation [Unknown]
  - Psychiatric symptom [Unknown]
  - Weight decreased [Unknown]
